FAERS Safety Report 22820466 (Version 3)
Quarter: 2023Q4

REPORT INFORMATION
  Report Type: Spontaneous
  Country: DE (occurrence: DE)
  Receive Date: 20230814
  Receipt Date: 20231010
  Transmission Date: 20240110
  Serious: No
  Sender: FDA-Public Use
  Company Number: DE-PFIZER INC-PV202300136182

PATIENT
  Age: 24 Year
  Sex: Female
  Weight: 67 kg

DRUGS (1)
  1. MEDROXYPROGESTERONE [Suspect]
     Active Substance: MEDROXYPROGESTERONE
     Indication: Contraception
     Dosage: 104 MG/0.65 ML
     Dates: start: 20230804

REACTIONS (2)
  - Device leakage [Unknown]
  - Device use error [Unknown]

NARRATIVE: CASE EVENT DATE: 20230804
